FAERS Safety Report 15934016 (Version 2)
Quarter: 2019Q2

REPORT INFORMATION
  Report Type: Report from Study
  Country: BR (occurrence: BR)
  Receive Date: 20190207
  Receipt Date: 20190508
  Transmission Date: 20190711
  Serious: Yes (Hospitalization)
  Sender: FDA-Public Use
  Company Number: PHHY2019BR021561

PATIENT
  Age: 34 Year
  Sex: Male
  Weight: 96 kg

DRUGS (1)
  1. OMNITROPE [Suspect]
     Active Substance: SOMATROPIN
     Indication: PRODUCT USED FOR UNKNOWN INDICATION
     Dosage: 1 MG, QN, AMPOULE
     Route: 058
     Dates: start: 20190114

REACTIONS (4)
  - Renal disorder [Unknown]
  - Incorrect dose administered by device [Unknown]
  - Device leakage [Unknown]
  - General physical health deterioration [Unknown]

NARRATIVE: CASE EVENT DATE: 20190114
